FAERS Safety Report 4731685-8 (Version None)
Quarter: 2005Q3

REPORT INFORMATION
  Report Type: 
  Country: None (occurrence: None)
  Receive Date: 20050725
  Receipt Date: 20050428
  Transmission Date: 20060218
  Serious: Yes (Other)
  Sender: FDA-Public Use
  Company Number: WAES 0505USA00111

PATIENT
  Sex: Female

DRUGS (1)
  1. VIOXX [Suspect]
     Dosage: UNK/UNK/PO
     Route: 048
     Dates: start: 20000201, end: 20040601

REACTIONS (2)
  - PAIN [None]
  - RENAL FAILURE ACUTE [None]
